FAERS Safety Report 4618179-5 (Version None)
Quarter: 2005Q1

REPORT INFORMATION
  Report Type: 
  Country: None (occurrence: None)
  Receive Date: 20050322
  Receipt Date: 20050308
  Transmission Date: 20050727
  Serious: Yes (Hospitalization)
  Sender: FDA-Public Use
  Company Number: 2005BI002099

PATIENT
  Age: 36 Year
  Sex: Female

DRUGS (10)
  1. AVONEX [Suspect]
     Indication: MULTIPLE SCLEROSIS
     Dosage: 30 UG;QW; IM
     Route: 030
     Dates: start: 20030601
  2. AVONEX [Suspect]
     Indication: MULTIPLE SCLEROSIS
     Dosage: 30 UG;QW; IM
     Route: 030
     Dates: start: 20040630
  3. NEURONTIN [Concomitant]
  4. MOTRIN [Concomitant]
  5. VALIUM [Concomitant]
  6. ADVAIR DISKUS 100/50 [Concomitant]
  7. LORCET-HD [Concomitant]
  8. SYNTHROID [Concomitant]
  9. ENALAPRIL [Concomitant]
  10. IRON [Concomitant]

REACTIONS (2)
  - HYPERTENSION [None]
  - PANCREATITIS [None]
